FAERS Safety Report 21080498 (Version 1)
Quarter: 2022Q3

REPORT INFORMATION
  Report Type: Spontaneous
  Country: None (occurrence: US)
  Receive Date: 20220714
  Receipt Date: 20220714
  Transmission Date: 20221027
  Serious: No
  Sender: FDA-Public Use
  Company Number: US-Bio Products Laboratory Ltd-2130844

PATIENT
  Age: 6 Year
  Sex: Female

DRUGS (2)
  1. HUMAN IMMUNOGLOBULIN G [Suspect]
     Active Substance: HUMAN IMMUNOGLOBULIN G
     Indication: Mucocutaneous rash
     Route: 042
  2. DEXTROSE [Concomitant]
     Active Substance: DEXTROSE

REACTIONS (2)
  - Dermatitis psoriasiform [Recovered/Resolved]
  - Off label use [Unknown]
